FAERS Safety Report 17667175 (Version 1)
Quarter: 2020Q2

REPORT INFORMATION
  Report Type: Spontaneous
  Country: US (occurrence: US)
  Receive Date: 20200414
  Receipt Date: 20200414
  Transmission Date: 20200713
  Serious: Yes (Other)
  Sender: FDA-Public Use
  Company Number: US-PFIZER INC-2020148325

PATIENT
  Age: 86 Year
  Sex: Female

DRUGS (25)
  1. METHOTREXATE. [Concomitant]
     Active Substance: METHOTREXATE
     Indication: RHEUMATOID ARTHRITIS
     Dosage: 15 MG, UNK (2.5 MG TABLET-6 TABLETS EVERY THURSDAY)
  2. FUROSEMIDE. [Concomitant]
     Active Substance: FUROSEMIDE
     Indication: PERIPHERAL SWELLING
     Dosage: UNK (40MG TABLET-1.5 TABLETS: MONDAY,WEDNESDAY,FRIDAY-1 TABLET OTHER DAYS)
  3. BENEFIBER [Concomitant]
     Active Substance: STARCH, WHEAT
     Dosage: UNK
  4. BIOTIN [Concomitant]
     Active Substance: BIOTIN
     Dosage: UNK
     Dates: start: 2018
  5. METHOTREXATE. [Concomitant]
     Active Substance: METHOTREXATE
     Indication: PAIN
  6. REMICADE [Concomitant]
     Active Substance: INFLIXIMAB
     Indication: PAIN
  7. SENOKOT [Concomitant]
     Active Substance: SENNOSIDES
     Indication: LAXATIVE SUPPORTIVE CARE
     Dosage: UNK (TAKEN ALL THE TIME)
  8. RITUXAN [Concomitant]
     Active Substance: RITUXIMAB
     Indication: RHEUMATOID ARTHRITIS
     Dosage: UNK (UNKNOWN DOSE INFUSION EVERY 6 MONTHS)
  9. VITAMIN B [Concomitant]
     Active Substance: VITAMIN B
     Dosage: UNK
  10. RETAINE CMC [Concomitant]
     Indication: SJOGREN^S SYNDROME
  11. POTASSIUM [Concomitant]
     Active Substance: POTASSIUM
     Dosage: 20 MEQ, 2X/DAY
  12. ESTRADIOL. [Concomitant]
     Active Substance: ESTRADIOL
     Indication: HOT FLUSH
     Dosage: UNK
  13. FOLIC ACID. [Concomitant]
     Active Substance: FOLIC ACID
     Dosage: 1 MG, UNK
  14. SIMVASTATIN. [Concomitant]
     Active Substance: SIMVASTATIN
     Dosage: 20 MG, UNK
  15. CITRACAL [CALCIUM CITRATE] [Concomitant]
     Active Substance: CALCIUM CITRATE
     Dosage: UNK
  16. OMEPRAZOLE. [Concomitant]
     Active Substance: OMEPRAZOLE
     Dosage: 40 MG, DAILY
  17. RITUXAN [Concomitant]
     Active Substance: RITUXIMAB
     Indication: PAIN
  18. PREDNISONE. [Concomitant]
     Active Substance: PREDNISONE
     Indication: PAIN
     Dosage: 5 MG, EVERY DAY, DOSE INCREASED AS NEEDED
  19. AIRBORNE [Concomitant]
     Active Substance: HERBALS\MINERALS\VITAMINS
     Dosage: UNK, DAILY (AT LEAST 4 GUMMIES DAILY)
     Dates: start: 2018
  20. CELEBREX [Suspect]
     Active Substance: CELECOXIB
     Indication: RHEUMATOID ARTHRITIS
     Dosage: 200 MG, 1X/DAY
  21. REMICADE [Concomitant]
     Active Substance: INFLIXIMAB
     Indication: RHEUMATOID ARTHRITIS
     Dosage: UNK (UNKNOWN DOSE INFUSION ADMINISTERED EVERY 6 WEEKS)
  22. LEVOTHYROXINE. [Concomitant]
     Active Substance: LEVOTHYROXINE
     Dosage: 88 UG, 1X/DAY
  23. PREDNISONE. [Concomitant]
     Active Substance: PREDNISONE
     Dosage: 5 MG, AS NEEDED
  24. EQUATE IBUPROFEN [Concomitant]
     Active Substance: IBUPROFEN
     Dosage: UNK
  25. RETAINE CMC [Concomitant]
     Indication: DRY EYE
     Dosage: UNK UNK, AS NEEDED (USES IT 5-6 TIMES DAILY AS NEEDED)

REACTIONS (6)
  - Fall [Unknown]
  - Gait disturbance [Not Recovered/Not Resolved]
  - Pain [Not Recovered/Not Resolved]
  - Tendon rupture [Not Recovered/Not Resolved]
  - Hypoacusis [Not Recovered/Not Resolved]
  - Thrombosis [Recovering/Resolving]

NARRATIVE: CASE EVENT DATE: 20191022
